FAERS Safety Report 5419499-7 (Version None)
Quarter: 2007Q3

REPORT INFORMATION
  Report Type: 
  Country: None (occurrence: None)
  Receive Date: 20070817
  Receipt Date: 20070817
  Transmission Date: 20080115
  Serious: No
  Sender: FDA-Public Use
  Company Number: None

PATIENT
  Sex: Female
  Weight: 68.2 kg

DRUGS (1)
  1. FORTAZ [Suspect]
     Indication: STAPHYLOCOCCAL INFECTION
     Dosage: 1 GRAM EVERY 8 HOURS IV
     Route: 042
     Dates: start: 20070710, end: 20070723

REACTIONS (1)
  - PRURITUS [None]
